FAERS Safety Report 9620103 (Version 1)
Quarter: 2013Q4

REPORT INFORMATION
  Report Type: Spontaneous
  Country: US (occurrence: US)
  Receive Date: 20131014
  Receipt Date: 20131014
  Transmission Date: 20140711
  Serious: Yes (Other)
  Sender: FDA-Public Use
  Company Number: US-CELGENEUS-163-POMAL-13102067

PATIENT
  Sex: Female

DRUGS (2)
  1. POMALYST [Suspect]
     Indication: PLASMA CELL MYELOMA
     Dosage: 2 MILLIGRAM
     Route: 048
     Dates: start: 20130906
  2. RED BLOOD CELLS [Concomitant]
     Indication: PANCYTOPENIA
     Route: 041
     Dates: start: 2013, end: 2013

REACTIONS (1)
  - Pancytopenia [Unknown]
